FAERS Safety Report 10373846 (Version 1)
Quarter: 2014Q1

REPORT INFORMATION
  Report Type: Spontaneous
  Country: US (occurrence: None)
  Receive Date: 20140306
  Receipt Date: 20140306
  Transmission Date: 20141002
  Serious: Yes (Other)
  Sender: FDA-Public Use
  Company Number: 163-21880-13094161

PATIENT
  Age: 55 Year
  Sex: Male
  Weight: 92.5 kg

DRUGS (5)
  1. REVLIMID [Suspect]
     Indication: MYELODYSPLASTIC SYNDROME
     Route: 048
     Dates: start: 20130906
  2. XANAX (ALPRAZOLAM) [Concomitant]
  3. AMLODIPINE BESYLATE (AMLODIPINE BESILATE) [Concomitant]
  4. LOPRESSOR (METOPROLOL TARTRATE) [Concomitant]
  5. HCTZ (HYDROCHLOROTHIAZIDE) [Concomitant]

REACTIONS (8)
  - Rectal haemorrhage [None]
  - Haematochezia [None]
  - White blood cell disorder [None]
  - Red blood cell count abnormal [None]
  - Rash [None]
  - Contusion [None]
  - Constipation [None]
  - Abdominal pain [None]
